FAERS Safety Report 6128838-3 (Version None)
Quarter: 2009Q1

REPORT INFORMATION
  Report Type: 
  Country: None (occurrence: None)
  Receive Date: 20090320
  Receipt Date: 20090309
  Transmission Date: 20090719
  Serious: Yes (Other)
  Sender: FDA-Public Use
  Company Number: 2008-185430-NL

PATIENT
  Age: 49 Year
  Sex: Male

DRUGS (8)
  1. REMERON [Suspect]
     Dosage: 30 MG DAILY ORAL
     Route: 048
     Dates: start: 20080821, end: 20080825
  2. REMERON [Suspect]
     Dosage: 15 MG DAILY ORAL
     Route: 048
     Dates: start: 20080826, end: 20080904
  3. EFFEXOR [Suspect]
     Dosage: 37.5 MG DAILY ORAL
     Route: 048
     Dates: start: 20080822, end: 20080826
  4. EFFEXOR [Suspect]
     Dosage: 75 MG DAILY ORAL
     Route: 048
     Dates: start: 20080827, end: 20080829
  5. EFFEXOR [Suspect]
     Dosage: 150 MG DAILY ORAL
     Route: 048
     Dates: start: 20080828, end: 20080829
  6. EFFEXOR [Suspect]
     Dosage: 75 MG DAILY ORAL
     Route: 048
     Dates: start: 20080830, end: 20080904
  7. SOLIAN [Concomitant]
  8. NOZINAN [Concomitant]

REACTIONS (1)
  - SEROTONIN SYNDROME [None]
